FAERS Safety Report 5117038-1 (Version None)
Quarter: 2006Q3

REPORT INFORMATION
  Report Type: 
  Country: None (occurrence: None)
  Receive Date: 20060925
  Receipt Date: 20060918
  Transmission Date: 20061208
  Serious: Yes (Disabling)
  Sender: FDA-Public Use
  Company Number: 2006106623

PATIENT
  Age: 71 Year
  Sex: Female

DRUGS (6)
  1. LIPITOR [Suspect]
     Indication: BLOOD CHOLESTEROL INCREASED
     Dosage: 20 MG (20 MG, 1 IN 1 D), ORAL
     Route: 048
     Dates: start: 20060812, end: 20060901
  2. NORVASC (AMOLODIPINE) [Concomitant]
  3. LANSOPRAZOLE [Concomitant]
  4. PRO-BANTHINE  (PROPANTHELINE BROMIDE) [Concomitant]
  5. ACETAMINOPHEN [Concomitant]
  6. LISDOUR (LISINOPRIL) [Concomitant]

REACTIONS (3)
  - ARTHRALGIA [None]
  - IMMOBILE [None]
  - MYALGIA [None]
